FAERS Safety Report 11222286 (Version 1)
Quarter: 2015Q2

REPORT INFORMATION
  Report Type: Spontaneous
  Country: CN (occurrence: CN)
  Receive Date: 20150626
  Receipt Date: 20150626
  Transmission Date: 20150821
  Serious: Yes (Other)
  Sender: FDA-Public Use
  Company Number: CN-JNJFOC-20150613588

PATIENT

DRUGS (7)
  1. DEXAMETHASONE. [Suspect]
     Active Substance: DEXAMETHASONE
     Indication: ACUTE LYMPHOCYTIC LEUKAEMIA
     Route: 065
  2. VINCRISTINE [Interacting]
     Active Substance: VINCRISTINE
     Indication: ACUTE LYMPHOCYTIC LEUKAEMIA
     Dosage: A MAXIMUM DOSE OF 2 MG
     Route: 042
     Dates: start: 201201, end: 201312
  3. PREDNISONE. [Suspect]
     Active Substance: PREDNISONE
     Indication: ACUTE LYMPHOCYTIC LEUKAEMIA
     Route: 065
  4. DOXORUBICIN [Suspect]
     Active Substance: DOXORUBICIN
     Indication: ACUTE LYMPHOCYTIC LEUKAEMIA
     Route: 065
  5. L-ASPARAGINASE [Suspect]
     Active Substance: ASPARAGINASE
     Indication: ACUTE LYMPHOCYTIC LEUKAEMIA
     Route: 065
  6. ITRACONAZOLE. [Suspect]
     Active Substance: ITRACONAZOLE
     Indication: SYSTEMIC MYCOSIS
     Route: 048
  7. DAUNORUBICIN [Suspect]
     Active Substance: DAUNORUBICIN
     Indication: ACUTE LYMPHOCYTIC LEUKAEMIA
     Route: 042

REACTIONS (23)
  - Hepatitis [Unknown]
  - Blindness transient [Unknown]
  - Ileus [Unknown]
  - Pain in jaw [Unknown]
  - Drug interaction [Unknown]
  - Autonomic neuropathy [Unknown]
  - Hyperhidrosis [Unknown]
  - Blood electrolytes abnormal [Unknown]
  - Muscular weakness [Unknown]
  - Gastrointestinal perforation [Unknown]
  - Muscle spasms [Unknown]
  - Cranial nerve disorder [Unknown]
  - Hypertension [Unknown]
  - Seizure [Unknown]
  - Gastrointestinal toxicity [Unknown]
  - Eyelid ptosis [Unknown]
  - Abdominal pain [Unknown]
  - Dysuria [Unknown]
  - Vomiting [Unknown]
  - Arthralgia [Unknown]
  - Constipation [Unknown]
  - Back pain [Unknown]
  - Neuropathy peripheral [Unknown]
